FAERS Safety Report 4628810-6 (Version None)
Quarter: 2005Q2

REPORT INFORMATION
  Report Type: 
  Country: None (occurrence: None)
  Receive Date: 20050406
  Receipt Date: 20050322
  Transmission Date: 20051028
  Serious: Yes (Hospitalization)
  Sender: FDA-Public Use
  Company Number: DSA_25775_2005

PATIENT
  Age: 68 Year
  Sex: Female

DRUGS (8)
  1. CARDIZEM LA [Suspect]
     Indication: ATRIAL FIBRILLATION
     Dosage: 360 MG Q DAY PO
     Route: 048
     Dates: start: 20050126, end: 20050101
  2. CARDIZEM LA [Suspect]
     Indication: HYPERTENSION
     Dosage: 360 MG Q DAY PO
     Route: 048
     Dates: start: 20050126, end: 20050101
  3. DILTIAZEM [Suspect]
     Indication: ATRIAL FIBRILLATION
     Dosage: 360 MG Q DAY
     Dates: start: 20050101, end: 20050101
  4. CARDIZEM LA [Suspect]
     Indication: ATRIAL FIBRILLATION
     Dosage: 240 MG Q DAY PO
     Route: 048
     Dates: end: 20050222
  5. CARDIZEM LA [Suspect]
     Indication: ATRIAL FIBRILLATION
     Dosage: 180 MG Q DAY PO
     Route: 048
     Dates: start: 20050222, end: 20050309
  6. COUMADIN [Suspect]
     Indication: ATRIAL FIBRILLATION
     Dosage: VAR Q DAY PO
     Route: 048
     Dates: start: 20050101
  7. LASIX [Concomitant]
  8. ZOLOFT [Concomitant]

REACTIONS (11)
  - ASTHENIA [None]
  - ATRIAL FIBRILLATION [None]
  - CARDIAC FAILURE CONGESTIVE [None]
  - DIARRHOEA [None]
  - DYSPNOEA EXACERBATED [None]
  - HEADACHE [None]
  - HYPERTENSION [None]
  - PAIN IN EXTREMITY [None]
  - PANIC ATTACK [None]
  - PHARMACEUTICAL PRODUCT COMPLAINT [None]
  - PNEUMONIA [None]
